FAERS Safety Report 6965973-1 (Version None)
Quarter: 2010Q3

REPORT INFORMATION
  Report Type: 
  Country: None (occurrence: None)
  Receive Date: 20100903
  Receipt Date: 20100823
  Transmission Date: 20110219
  Serious: No
  Sender: FDA-Public Use
  Company Number: US-PFIZER INC-2010106195

PATIENT
  Sex: Female
  Weight: 47.166 kg

DRUGS (3)
  1. LYRICA [Suspect]
     Indication: TRIGEMINAL NEURALGIA
     Dosage: 50 MG, 1X/DAY
     Route: 048
     Dates: start: 20100801
  2. VALIUM [Suspect]
     Indication: MUSCLE SPASMS
     Dosage: 40 MG, 3X/DAY
     Route: 048
  3. CYMBALTA [Concomitant]
     Indication: TRIGEMINAL NEURALGIA
     Dosage: 60 MG, 1X/DAY
     Route: 048

REACTIONS (5)
  - DIZZINESS [None]
  - DRUG INEFFECTIVE [None]
  - FATIGUE [None]
  - FEAR [None]
  - MUSCULOSKELETAL STIFFNESS [None]
